FAERS Safety Report 10504122 (Version 1)
Quarter: 2014Q4

REPORT INFORMATION
  Report Type: Spontaneous
  Country: US (occurrence: US)
  Receive Date: 20141008
  Receipt Date: 20141008
  Transmission Date: 20150528
  Serious: Yes (Other)
  Sender: FDA-Public Use
  Company Number: US-BEH-2013039675

PATIENT
  Age: 52 Year
  Sex: Male

DRUGS (2)
  1. PRIVIGEN [Suspect]
     Active Substance: HUMAN IMMUNOGLOBULIN G
     Indication: VASCULITIS CEREBRAL
     Route: 042
     Dates: start: 20131218
  2. ENALAPRIL [Concomitant]
     Active Substance: ENALAPRIL
     Dosage: IN NOVEMBER

REACTIONS (2)
  - Angioedema [Unknown]
  - Face oedema [Unknown]

NARRATIVE: CASE EVENT DATE: 20131219
